FAERS Safety Report 11886345 (Version 3)
Quarter: 2016Q1

REPORT INFORMATION
  Report Type: Spontaneous
  Country: US (occurrence: US)
  Receive Date: 20160104
  Receipt Date: 20160129
  Transmission Date: 20160526
  Serious: No
  Sender: FDA-Public Use
  Company Number: US-ACTELION PHARMACEUTICALS US, INC.-A-NJ2015-128835

PATIENT
  Age: 56 Year
  Sex: Female

DRUGS (11)
  1. LACTULOSE. [Concomitant]
     Active Substance: LACTULOSE
     Dosage: 2 TBS, BID
  2. ABILIFY [Concomitant]
     Active Substance: ARIPIPRAZOLE
     Dosage: 30 MG, QD
     Dates: start: 2009
  3. VITAMIN B COMPLEX [Concomitant]
     Active Substance: CYANOCOBALAMIN\DEXPANTHENOL\NIACINAMIDE\PYRIDOXINE HYDROCHLORIDE\RIBOFLAVIN 5^-PHOSPHATE SODIUM\THIAMINE HYDROCHLORIDE\VITAMIN B COMPLEX
     Dosage: 100 MG, QD
  4. OXYGEN. [Concomitant]
     Active Substance: OXYGEN
     Dosage: 3 L/MIN, CONTINUOUS
  5. FISH OIL [Concomitant]
     Active Substance: FISH OIL
     Dosage: 1000 MG, QD
  6. OPSUMIT [Suspect]
     Active Substance: MACITENTAN
     Indication: PULMONARY ARTERIAL HYPERTENSION
     Dosage: 10 MG, QD
     Route: 048
     Dates: start: 20151210
  7. NARDIL [Concomitant]
     Active Substance: PHENELZINE SULFATE
     Dosage: 30 MG, QD IN AM
  8. NARDIL [Concomitant]
     Active Substance: PHENELZINE SULFATE
     Dosage: 15 MG, QD IN PM
  9. PROGRAF [Concomitant]
     Active Substance: TACROLIMUS\TACROLIMUS ANHYDROUS
     Dosage: 2 MG, Q12HRS
     Dates: start: 2010
  10. BUMEX [Concomitant]
     Active Substance: BUMETANIDE
     Dosage: 2 MG, BID
     Dates: start: 2010
  11. LEVOTHYROXINE. [Concomitant]
     Active Substance: LEVOTHYROXINE
     Dosage: 50 MCG, QD

REACTIONS (8)
  - Nausea [Unknown]
  - Abdominal pain upper [Not Recovered/Not Resolved]
  - Panic reaction [Not Recovered/Not Resolved]
  - Fluid retention [Not Recovered/Not Resolved]
  - Localised oedema [Not Recovered/Not Resolved]
  - Urine output decreased [Not Recovered/Not Resolved]
  - Dyspnoea [Not Recovered/Not Resolved]
  - Oxygen saturation decreased [Not Recovered/Not Resolved]

NARRATIVE: CASE EVENT DATE: 20151210
